FAERS Safety Report 6978398-X (Version None)
Quarter: 2010Q3

REPORT INFORMATION
  Report Type: 
  Country: None (occurrence: None)
  Receive Date: 20100913
  Receipt Date: 20100907
  Transmission Date: 20110219
  Serious: Yes (Death)
  Sender: FDA-Public Use
  Company Number: US-SANOFI-AVENTIS-2010SA054439

PATIENT
  Age: 72 Year
  Sex: Male

DRUGS (4)
  1. TAXOTERE [Suspect]
     Indication: PROSTATE CANCER
     Route: 042
  2. BLINDED THERAPY [Suspect]
     Indication: PROSTATE CANCER
     Route: 048
     Dates: start: 20100811
  3. PREDNISONE [Suspect]
     Indication: PROSTATE CANCER
     Route: 065
  4. DISSENTEN [Concomitant]
     Route: 065
     Dates: start: 20100812, end: 20100817

REACTIONS (2)
  - DEHYDRATION [None]
  - DIARRHOEA [None]
